FAERS Safety Report 9262871 (Version 2)
Quarter: 2013Q2

REPORT INFORMATION
  Report Type: Spontaneous
  Country: JP (occurrence: JP)
  Receive Date: 20130430
  Receipt Date: 20130530
  Transmission Date: 20140414
  Serious: Yes (Other)
  Sender: FDA-Public Use
  Company Number: JP-PFIZER INC-2013131498

PATIENT
  Age: 89 Year
  Sex: Female

DRUGS (6)
  1. NORVASC [Suspect]
     Dosage: UNK
     Route: 048
  2. SELARA [Concomitant]
     Route: 048
  3. CARDENALIN [Concomitant]
     Route: 048
  4. GLACTIVE [Concomitant]
  5. ARTIST [Concomitant]
  6. ARICEPT [Concomitant]

REACTIONS (2)
  - Haemoglobin decreased [Unknown]
  - Haematocrit decreased [Unknown]
